FAERS Safety Report 12717418 (Version 1)
Quarter: 2016Q3

REPORT INFORMATION
  Report Type: Spontaneous
  Country: SE (occurrence: SE)
  Receive Date: 20160906
  Receipt Date: 20160906
  Transmission Date: 20161109
  Serious: Yes (Other)
  Sender: FDA-Public Use
  Company Number: SE-TEVA-688123ISR

PATIENT
  Sex: Female

DRUGS (1)
  1. DOXYFERM [Suspect]
     Active Substance: DOXYCYCLINE
     Route: 065
     Dates: start: 200608

REACTIONS (1)
  - Neovascular age-related macular degeneration [Not Recovered/Not Resolved]

NARRATIVE: CASE EVENT DATE: 200608
